FAERS Safety Report 4295791-7 (Version None)
Quarter: 2004Q1

REPORT INFORMATION
  Report Type: 
  Country: None (occurrence: None)
  Receive Date: 20040216
  Receipt Date: 20031021
  Transmission Date: 20041129
  Serious: No
  Sender: FDA-Public Use
  Company Number: US-GLAXOSMITHKLINE-A0432856A

PATIENT
  Age: 25 Year
  Sex: Male

DRUGS (4)
  1. LAMICTAL [Suspect]
     Indication: BIPOLAR DISORDER
     Dosage: 25MG PER DAY
     Route: 048
  2. PAXIL CR [Concomitant]
  3. ZYPREXA [Concomitant]
  4. KLONOPIN [Concomitant]

REACTIONS (2)
  - LYMPHADENOPATHY [None]
  - RESPIRATORY TRACT INFECTION [None]
